FAERS Safety Report 5386798-7 (Version None)
Quarter: 2007Q3

REPORT INFORMATION
  Report Type: 
  Country: None (occurrence: None)
  Receive Date: 20070713
  Receipt Date: 20070706
  Transmission Date: 20080115
  Serious: Yes (Other)
  Sender: FDA-Public Use
  Company Number: JP-GENENTECH-240816

PATIENT
  Sex: Female

DRUGS (7)
  1. RITUXAN [Suspect]
     Indication: NON-HODGKIN'S LYMPHOMA
     Dosage: 600 MG, QD
     Route: 042
     Dates: start: 20070216, end: 20070419
  2. DOXORUBICIN HYDROCHLORIDE [Concomitant]
     Indication: NON-HODGKIN'S LYMPHOMA
  3. CYCLOPHOSPHAMIDE [Concomitant]
     Indication: NON-HODGKIN'S LYMPHOMA
  4. ONCOVIN [Concomitant]
     Indication: NON-HODGKIN'S LYMPHOMA
  5. PREDONINE [Concomitant]
     Indication: NON-HODGKIN'S LYMPHOMA
  6. MINOCYCLINE HCL [Concomitant]
     Indication: DRUG USE FOR UNKNOWN INDICATION
     Dosage: 200 MG, UNK
     Route: 042
     Dates: start: 20070419
  7. PRODIF [Concomitant]
     Indication: DRUG USE FOR UNKNOWN INDICATION
     Dosage: 200 MG, UNK
     Route: 042
     Dates: start: 20070419

REACTIONS (1)
  - ANAPHYLACTIC SHOCK [None]
